FAERS Safety Report 5704131-5 (Version None)
Quarter: 2008Q2

REPORT INFORMATION
  Report Type: 
  Country: None (occurrence: None)
  Receive Date: 20080409
  Receipt Date: 20080401
  Transmission Date: 20081010
  Serious: Yes (Hospitalization)
  Sender: FDA-Public Use
  Company Number: CERZ-1000161

PATIENT
  Age: 5 Year
  Sex: Male
  Weight: 15 kg

DRUGS (16)
  1. CEREZYME [Suspect]
     Indication: GAUCHER'S DISEASE
     Dosage: 1600 U, Q2W, INTRAVENOUS
     Route: 042
     Dates: start: 20020909
  2. CLONAZEPAM [Concomitant]
  3. DIAZEPAM [Concomitant]
  4. PHENOBARBITAL TAB [Concomitant]
  5. DANTROLENE SODIUM [Concomitant]
  6. VALPROATE SODIUM [Concomitant]
  7. PARENTAL NUTRITION [Concomitant]
  8. LACTOMIN (LACTOMIN) [Concomitant]
  9. ZINC OXIDE (ZINC OXIDE) [Concomitant]
  10. WHITE PETROLEUM (PETROLATUM) [Concomitant]
  11. HEPARINOID (HEAPAINOID) [Concomitant]
  12. SODIUM PICOSULFATE (SOCIUM PICOSULFATE) [Concomitant]
  13. TRICHORETHYL PHOSPHATE SODIUM [Concomitant]
  14. PIRACETAM (PIRACETAM) [Concomitant]
  15. ACYCLOVIR [Concomitant]
  16. INFLUENZA HA VACCINE (INFLUENZA VIRUS VACCINE POLYVALENT) [Concomitant]

REACTIONS (2)
  - CONVULSION [None]
  - FEMORAL NECK FRACTURE [None]
